FAERS Safety Report 8507671-9 (Version None)
Quarter: 2012Q3

REPORT INFORMATION
  Report Type: 
  Country: None (occurrence: None)
  Receive Date: 20120713
  Receipt Date: 20120702
  Transmission Date: 20120928
  Serious: Yes (Other)
  Sender: FDA-Public Use
  Company Number: BR-BRISTOL-MYERS SQUIBB COMPANY-16731069

PATIENT
  Age: 48 Year
  Sex: Female

DRUGS (4)
  1. LOSARTAN POTASSIUM [Concomitant]
  2. NEBIVOLOL HCL [Concomitant]
     Indication: BLOOD PRESSURE
  3. METFORMIN HCL [Suspect]
     Indication: TYPE 2 DIABETES MELLITUS
     Dosage: TABS
     Dates: start: 20111101
  4. SYNTHROID [Concomitant]

REACTIONS (3)
  - NEPHROLITHIASIS [None]
  - MUSCULOSKELETAL PAIN [None]
  - BLOOD ALKALINE PHOSPHATASE INCREASED [None]
